FAERS Safety Report 6743690-0 (Version None)
Quarter: 2010Q2

REPORT INFORMATION
  Report Type: 
  Country: None (occurrence: None)
  Receive Date: 20100527
  Receipt Date: 20100514
  Transmission Date: 20101027
  Serious: Yes (Other)
  Sender: FDA-Public Use
  Company Number: US-BAYER-201016076NA

PATIENT
  Age: 22 Year
  Sex: Female
  Weight: 113 kg

DRUGS (2)
  1. YAZ [Suspect]
     Indication: DRUG USE FOR UNKNOWN INDICATION
     Route: 048
     Dates: start: 20000101, end: 20090101
  2. YASMIN [Suspect]
     Indication: DRUG USE FOR UNKNOWN INDICATION

REACTIONS (3)
  - DEEP VEIN THROMBOSIS [None]
  - GALLBLADDER DISORDER [None]
  - HYPERTENSION [None]
